FAERS Safety Report 20715703 (Version 2)
Quarter: 2022Q2

REPORT INFORMATION
  Report Type: Report from Study
  Country: DE (occurrence: DE)
  Receive Date: 20220415
  Receipt Date: 20220621
  Transmission Date: 20220720
  Serious: Yes (Death, Hospitalization)
  Sender: FDA-Public Use
  Company Number: DE-JAZZ-2021-DE-006902

PATIENT
  Age: 58 Year
  Sex: Male
  Weight: 69 kg

DRUGS (10)
  1. CYTARABINE\DAUNORUBICIN [Suspect]
     Active Substance: CYTARABINE\DAUNORUBICIN
     Indication: Acute myeloid leukaemia
     Dosage: 113.85 MG DAUNORUBICIN, 258.75 MILLIGRAM CYTARABINE
     Route: 042
     Dates: start: 20210204, end: 20210208
  2. CYTARABINE\DAUNORUBICIN [Suspect]
     Active Substance: CYTARABINE\DAUNORUBICIN
     Dosage: 106.15 MG DAUNORUBICIN, 241.25 MILLIGRAM CYTARABINE
     Route: 042
     Dates: start: 20210312, end: 20210314
  3. PANTOPRAZOLE [Concomitant]
     Active Substance: PANTOPRAZOLE
     Dosage: 40 MILLIGRAM, QD
     Route: 048
     Dates: start: 20210126, end: 20210215
  4. RAMIPRIL [Concomitant]
     Active Substance: RAMIPRIL
     Indication: Hypertension
     Dosage: 2.5 MILLIGRAM, QD
     Route: 048
     Dates: start: 20210228, end: 20210305
  5. HYDROXYUREA [Concomitant]
     Active Substance: HYDROXYUREA
     Dosage: 500 MILLIGRAM, 6*/D (Q4H)
     Route: 048
     Dates: start: 20210129, end: 20210305
  6. KOLYUM [Concomitant]
     Indication: Hypocalcaemia
     Dosage: 40 MILLIMOLE, QD
     Route: 042
     Dates: start: 20210129, end: 20210305
  7. PIPERACILIN [Concomitant]
     Indication: Infection
     Dosage: 4.5 MILLIGRAM, BID
     Route: 042
     Dates: start: 202101, end: 202102
  8. LINEZOLID [Concomitant]
     Active Substance: LINEZOLID
     Indication: Infection
     Dosage: 600 MILLIGRAM, BID
     Route: 042
     Dates: start: 20210203, end: 20210304
  9. MEROPENEM [Concomitant]
     Active Substance: MEROPENEM
     Indication: Infection
     Dosage: 1 GRAM, TID
     Route: 042
     Dates: start: 20210203, end: 20210208
  10. PIPERACILLIN AND TAZOBACTAM [Concomitant]
     Active Substance: PIPERACILLIN SODIUM\TAZOBACTAM SODIUM
     Indication: Infection
     Dosage: 4.5 MILLIGRAM, TID
     Dates: start: 20210129, end: 20210203

REACTIONS (3)
  - Haemorrhage intracranial [Fatal]
  - Overdose [Fatal]
  - Overdose [Recovered/Resolved]

NARRATIVE: CASE EVENT DATE: 20210204
